FAERS Safety Report 4699274-1 (Version None)
Quarter: 2005Q2

REPORT INFORMATION
  Report Type: 
  Country: None (occurrence: None)
  Receive Date: 20050622
  Receipt Date: 20050627
  Transmission Date: 20051028
  Serious: Yes (Death, Life-Threatening)
  Sender: FDA-Public Use
  Company Number: OMPQ-NO-0506S-0784

PATIENT
  Age: 64 Year
  Sex: Male
  Weight: 59.7 kg

DRUGS (6)
  1. OMNIPAQUE 140 [Suspect]
     Indication: BILE DUCT CANCER
     Dosage: 100 ML, SINGLE DOSE, I.V.
     Route: 042
     Dates: start: 20050415, end: 20050415
  2. RED BLOOD CELLS, CONCENTRATED 9RED BLOOD CELLS MAP) [Concomitant]
  3. PLASMA PROTEIN FRACTION HUMAN (FRESH LIQUID PLASMA) [Concomitant]
  4. URSODEOXYCHOLIC ACID (URSO) [Concomitant]
  5. REBAMIPIDE (MUCOSTA) [Concomitant]
  6. LOXOPROFEN SODIUM (LOXONIN) [Concomitant]

REACTIONS (9)
  - ACUTE RESPIRATORY DISTRESS SYNDROME [None]
  - BILE DUCT CANCER RECURRENT [None]
  - BLOOD PRESSURE DECREASED [None]
  - HAEMOGLOBIN DECREASED [None]
  - HEPATIC FAILURE [None]
  - PORTAL VEIN OCCLUSION [None]
  - POST PROCEDURAL COMPLICATION [None]
  - RED BLOOD CELL COUNT DECREASED [None]
  - URINE OUTPUT DECREASED [None]
